FAERS Safety Report 6931353-8 (Version None)
Quarter: 2010Q3

REPORT INFORMATION
  Report Type: 
  Country: None (occurrence: None)
  Receive Date: 20100817
  Receipt Date: 20100806
  Transmission Date: 20110219
  Serious: Yes (Death, Hospitalization)
  Sender: FDA-Public Use
  Company Number: 016825

PATIENT
  Sex: Female

DRUGS (5)
  1. KEPPRA [Suspect]
     Indication: EPILEPSY
     Dosage: (ORAL)
     Route: 048
     Dates: start: 20091201, end: 20100211
  2. INDAPAMIDE [Concomitant]
  3. CRESTOR [Concomitant]
  4. INEXIUM /01479302/ [Concomitant]
  5. PIASCLEDINE /01305801/ [Concomitant]

REACTIONS (1)
  - BONE MARROW FAILURE [None]
